FAERS Safety Report 14014603 (Version 3)
Quarter: 2018Q2

REPORT INFORMATION
  Report Type: Report from Study
  Country: None (occurrence: US)
  Receive Date: 20170927
  Receipt Date: 20180418
  Transmission Date: 20180711
  Serious: Yes (Hospitalization)
  Sender: FDA-Public Use
  Company Number: US-ABBVIE-17K-163-2110100-00

PATIENT
  Age: 62 Year
  Sex: Male
  Weight: 69.92 kg

DRUGS (4)
  1. ALPRAZOLAM. [Concomitant]
     Active Substance: ALPRAZOLAM
     Indication: INSOMNIA
  2. VITAMIN D3 [Concomitant]
     Active Substance: CHOLECALCIFEROL
     Indication: VITAMIN SUPPLEMENTATION
  3. HUMIRA [Suspect]
     Active Substance: ADALIMUMAB
     Indication: COLITIS ULCERATIVE
     Route: 058
     Dates: start: 201606
  4. VITAMIN B6 [Concomitant]
     Active Substance: PYRIDOXINE HYDROCHLORIDE
     Indication: VITAMIN SUPPLEMENTATION

REACTIONS (10)
  - Peripheral swelling [Recovering/Resolving]
  - Vitamin B12 deficiency [Recovering/Resolving]
  - Joint swelling [Unknown]
  - Colitis ulcerative [Recovered/Resolved]
  - Snake bite [Recovering/Resolving]
  - Weight bearing difficulty [Recovering/Resolving]
  - Back pain [Recovered/Resolved]
  - Colitis ulcerative [Unknown]
  - Gait disturbance [Unknown]
  - Pain in extremity [Recovering/Resolving]

NARRATIVE: CASE EVENT DATE: 201611
